FAERS Safety Report 5262536-3 (Version None)
Quarter: 2007Q1

REPORT INFORMATION
  Report Type: 
  Country: None (occurrence: None)
  Receive Date: 20070309
  Receipt Date: 20070309
  Transmission Date: 20070707
  Serious: Yes (Other)
  Sender: FDA-Public Use
  Company Number: None

PATIENT
  Age: 47 Year
  Sex: Male
  Weight: 61 kg

DRUGS (3)
  1. ETOPOSIDE [Suspect]
     Indication: SMALL CELL LUNG CANCER STAGE UNSPECIFIED
     Dosage: ETOPOSIDE 170 MG D1-3 IV
     Route: 042
     Dates: start: 20070213, end: 20070215
  2. CISPLATIN [Suspect]
     Indication: SMALL CELL LUNG CANCER STAGE UNSPECIFIED
     Dosage: CISPLATIN 140 MG D1 IV
     Route: 042
     Dates: start: 20061024, end: 20070213
  3. CISPLATIN [Suspect]

REACTIONS (1)
  - NEUTROPENIA [None]
